FAERS Safety Report 4423040-5 (Version None)
Quarter: 2004Q3

REPORT INFORMATION
  Report Type: 
  Country: None (occurrence: None)
  Receive Date: 20040806
  Receipt Date: 20040726
  Transmission Date: 20050211
  Serious: Yes (Other)
  Sender: FDA-Public Use
  Company Number: GB-JNJFOC-20040706925

PATIENT
  Age: 22 Year
  Sex: Male
  Weight: 96 kg

DRUGS (4)
  1. REMICADE [Suspect]
     Indication: CROHN'S DISEASE
     Dosage: 480 MG, 1 IN 1 DAY, INTRAVENOUS
     Route: 042
     Dates: start: 20040705, end: 20040705
  2. PREDNISOLONE [Concomitant]
  3. AZATHIOPRINE [Concomitant]
  4. CALCICHEW (CALCIUM CARBONATE) [Concomitant]

REACTIONS (4)
  - BLOOD PRESSURE DECREASED [None]
  - DYSPNOEA [None]
  - OEDEMA MOUTH [None]
  - OXYGEN SATURATION DECREASED [None]
